FAERS Safety Report 11379498 (Version 1)
Quarter: 2015Q3

REPORT INFORMATION
  Report Type: Spontaneous
  Country: US (occurrence: None)
  Receive Date: 20150813
  Receipt Date: 20150813
  Transmission Date: 20151125
  Serious: Yes (Life-Threatening)
  Sender: FDA-Public Use
  Company Number: None

PATIENT
  Age: 69 Year
  Sex: Male
  Weight: 86.18 kg

DRUGS (2)
  1. DOXAZOSIN 4MG TABLETS [Suspect]
     Active Substance: DOXAZOSIN MESYLATE
     Indication: BENIGN PROSTATIC HYPERPLASIA
     Dosage: 1 PILL
     Route: 048
     Dates: start: 20141218, end: 20150610
  2. SAW PALMETTO [Concomitant]
     Active Substance: SAW PALMETTO

REACTIONS (2)
  - Atrial fibrillation [None]
  - Dyspnoea exertional [None]

NARRATIVE: CASE EVENT DATE: 20150617
